FAERS Safety Report 6291478-X (Version None)
Quarter: 2009Q3

REPORT INFORMATION
  Report Type: 
  Country: None (occurrence: None)
  Receive Date: 20090729
  Receipt Date: 20090729
  Transmission Date: 20100115
  Serious: Yes (Other)
  Sender: FDA-Public Use
  Company Number: None

PATIENT
  Age: 35 Year
  Sex: Female
  Weight: 108.8633 kg

DRUGS (1)
  1. SYMBICORT [Suspect]
     Indication: ASTHMA
     Dosage: 2 PUFFS MORNING AND EVENING INHAL
     Route: 055
     Dates: start: 20090701, end: 20090722

REACTIONS (3)
  - ANXIETY [None]
  - HEART RATE IRREGULAR [None]
  - PALPITATIONS [None]
